FAERS Safety Report 6163762-1 (Version None)
Quarter: 2009Q2

REPORT INFORMATION
  Report Type: 
  Country: None (occurrence: None)
  Receive Date: 20090420
  Receipt Date: 20090420
  Transmission Date: 20091009
  Serious: Yes (Other)
  Sender: FDA-Public Use
  Company Number: None

PATIENT
  Age: 64 Year
  Sex: Male
  Weight: 104.3273 kg

DRUGS (8)
  1. ZOLADEX [Suspect]
     Dosage: 1 TIME, 10.8 MG SC
     Route: 058
     Dates: start: 20080424
  2. ANDROGEL [Concomitant]
  3. ARIMIDEX (ANSTROZOLE) [Concomitant]
  4. ATENOLOL [Concomitant]
  5. HYDROCHLOROTHIAZIDE [Concomitant]
  6. HYDROCHLOROTHIAZIDE [Concomitant]
  7. SIMVASTATIN [Concomitant]
  8. ASPIRIN [Concomitant]

REACTIONS (4)
  - HOT FLUSH [None]
  - HYPOGONADISM [None]
  - HYPOTHALAMO-PITUITARY DISORDER [None]
  - MUSCULAR WEAKNESS [None]
